FAERS Safety Report 5636616-4 (Version None)
Quarter: 2008Q1

REPORT INFORMATION
  Report Type: 
  Country: None (occurrence: None)
  Receive Date: 20080219
  Receipt Date: 20080208
  Transmission Date: 20080703
  Serious: No
  Sender: FDA-Public Use
  Company Number: 2007-169007-NL

PATIENT
  Age: 17 Year
  Sex: Male

DRUGS (1)
  1. CHORIONIC GONADTROPIN [Suspect]
     Indication: DELAYED PUBERTY
     Dosage: 1500 IU ONCE
     Dates: start: 20071208, end: 20071208

REACTIONS (3)
  - CONVULSION [None]
  - HYPERHIDROSIS [None]
  - THIRST [None]
